FAERS Safety Report 23384646 (Version 4)
Quarter: 2025Q1

REPORT INFORMATION
  Report Type: Spontaneous
  Country: US (occurrence: US)
  Receive Date: 20240109
  Receipt Date: 20250128
  Transmission Date: 20250408
  Serious: No
  Sender: PFIZER
  Company Number: US-PFIZER INC-202400003431

PATIENT
  Age: 51 Year
  Sex: Female

DRUGS (14)
  1. INLYTA [Suspect]
     Active Substance: AXITINIB
     Indication: Adenoid cystic carcinoma
     Dosage: 5 MG, 2X/DAY, (1 TABLET (5 MG) IN THE MORNING AND 1 TABLET (5 MG) BEFORE BEDTIME)
     Route: 048
     Dates: start: 20240101
  2. INLYTA [Suspect]
     Active Substance: AXITINIB
     Dosage: 5 MG, 2X/DAY
     Route: 048
     Dates: start: 20240101
  3. INLYTA [Suspect]
     Active Substance: AXITINIB
     Dosage: 5 MG, 2X/DAY
     Route: 048
     Dates: start: 20240101
  4. INLYTA [Suspect]
     Active Substance: AXITINIB
     Dosage: 5 MG TABLET - 1 TABLET (5 MG) BY MOUTH IN THE MORNING AND 1 TABLET (5 MG) BEFORE BEDTIME
     Route: 048
     Dates: start: 20240101
  5. METHYLPHENIDATE [Concomitant]
     Active Substance: METHYLPHENIDATE
  6. IRON [Concomitant]
     Active Substance: IRON
  7. BAVENCIO [Concomitant]
     Active Substance: AVELUMAB
  8. XGEVA [Concomitant]
     Active Substance: DENOSUMAB
  9. ONDANSETRON HYDROCHLORIDE [Concomitant]
     Active Substance: ONDANSETRON HYDROCHLORIDE
  10. HYDROCHLOROTHIAZIDE [Concomitant]
     Active Substance: HYDROCHLOROTHIAZIDE
  11. FLONASE [Concomitant]
     Active Substance: FLUTICASONE PROPIONATE
  12. CALTRATE [Concomitant]
     Active Substance: CALCIUM CARBONATE
  13. FAMOTIDINE [Concomitant]
     Active Substance: FAMOTIDINE
  14. GABAPENTIN [Concomitant]
     Active Substance: GABAPENTIN

REACTIONS (7)
  - Blood pressure increased [Not Recovered/Not Resolved]
  - Dysphonia [Not Recovered/Not Resolved]
  - Fatigue [Not Recovered/Not Resolved]
  - Dry skin [Not Recovered/Not Resolved]
  - Constipation [Recovering/Resolving]
  - Off label use [Unknown]
  - Neoplasm progression [Not Recovered/Not Resolved]

NARRATIVE: CASE EVENT DATE: 20240101
